FAERS Safety Report 9901298 (Version 3)
Quarter: 2014Q4

REPORT INFORMATION
  Report Type: Spontaneous
  Country: US (occurrence: US)
  Receive Date: 20140217
  Receipt Date: 20141209
  Transmission Date: 20150529
  Serious: Yes (Hospitalization, Other)
  Sender: FDA-Public Use
  Company Number: US-BAYER-2014-024406

PATIENT
  Age: 24 Year
  Sex: Female

DRUGS (3)
  1. APRI [Concomitant]
     Active Substance: DESOGESTREL\ETHINYL ESTRADIOL
  2. IMPLANON [Concomitant]
     Active Substance: ETONOGESTREL
     Dosage: UNK
     Dates: start: 20130118
  3. MIRENA [Suspect]
     Active Substance: LEVONORGESTREL
     Indication: CONTRACEPTION
     Dosage: 20 MCG/24HR, CONT
     Route: 015
     Dates: start: 20110325, end: 20130517

REACTIONS (7)
  - Injury [None]
  - Procedural pain [None]
  - Device dislocation [None]
  - Medical device discomfort [None]
  - Medical device pain [None]
  - Uterine perforation [None]
  - Scar [None]

NARRATIVE: CASE EVENT DATE: 20130517
